FAERS Safety Report 24278121 (Version 1)
Quarter: 2024Q3

REPORT INFORMATION
  Report Type: Spontaneous
  Country: US (occurrence: None)
  Receive Date: 20240830
  Receipt Date: 20240830
  Transmission Date: 20241017
  Serious: Yes (Hospitalization)
  Sender: Public
  Company Number: None

PATIENT
  Age: 60 Year
  Sex: Female

DRUGS (12)
  1. RAYALDEE [Suspect]
     Active Substance: CALCIFEDIOL
     Indication: Vitamin D decreased
     Dosage: FREQUENCY : DAILY;?
     Route: 048
     Dates: start: 20230222
  2. REPATHA [Suspect]
     Active Substance: EVOLOCUMAB
     Indication: Hyperlipidaemia
     Dosage: OTHER FREQUENCY : EVERY 2 WEEKS;?
     Route: 058
     Dates: start: 20221109
  3. ALBUTEROL [Concomitant]
     Active Substance: ALBUTEROL
  4. ALLOPURINOL [Concomitant]
     Active Substance: ALLOPURINOL
  5. AMIODARONE [Concomitant]
     Active Substance: AMIODARONE
  6. AMOXICILLIN [Concomitant]
     Active Substance: AMOXICILLIN
  7. ATORVASTATIN [Suspect]
     Active Substance: ATORVASTATIN
  8. CARVEDILOL [Suspect]
     Active Substance: CARVEDILOL
  9. DIGOXIN [Concomitant]
     Active Substance: DIGOXIN
  10. ENTRESTO [Concomitant]
     Active Substance: SACUBITRIL\VALSARTAN
  11. FAMOTIDINE [Concomitant]
     Active Substance: FAMOTIDINE
  12. Flonase NS [Concomitant]

REACTIONS (2)
  - Dyspnoea [None]
  - Fluid retention [None]

NARRATIVE: CASE EVENT DATE: 20240730
